FAERS Safety Report 18222935 (Version 1)
Quarter: 2020Q3

REPORT INFORMATION
  Report Type: Spontaneous
  Country: US (occurrence: US)
  Receive Date: 20200902
  Receipt Date: 20200902
  Transmission Date: 20201103
  Serious: Yes (Hospitalization, Other)
  Sender: FDA-Public Use
  Company Number: US-BRISTOL-MYERS SQUIBB COMPANY-BMS-2020-067494

PATIENT
  Age: 62 Year
  Sex: Male
  Weight: 108.84 kg

DRUGS (2)
  1. COUMADIN [Suspect]
     Active Substance: WARFARIN SODIUM
     Indication: ATRIAL FIBRILLATION
  2. COUMADIN [Suspect]
     Active Substance: WARFARIN SODIUM
     Indication: HEART VALVE REPLACEMENT
     Dosage: 5 MILLIGRAM, QD
     Route: 048
     Dates: start: 200505

REACTIONS (7)
  - Loss of control of legs [Unknown]
  - International normalised ratio increased [Unknown]
  - Cerebellar haemorrhage [Unknown]
  - Hypoaesthesia [Unknown]
  - Dizziness [Unknown]
  - Dysarthria [Unknown]
  - Muscular weakness [Unknown]

NARRATIVE: CASE EVENT DATE: 201505
